FAERS Safety Report 17003784 (Version 1)
Quarter: 2019Q4

REPORT INFORMATION
  Report Type: Spontaneous
  Country: FR (occurrence: FR)
  Receive Date: 20191107
  Receipt Date: 20191107
  Transmission Date: 20200122
  Serious: Yes (Other)
  Sender: FDA-Public Use
  Company Number: FR-TEVA-2019-FR-1131720

PATIENT
  Age: 69 Year
  Sex: Male
  Weight: 79 kg

DRUGS (5)
  1. ATORVASTATINE CALCIQUE TRIHYDRAT?E [Concomitant]
     Dosage: 80 MG 1 DAYS
     Route: 048
  2. VALSARTAN. [Suspect]
     Active Substance: VALSARTAN
     Indication: HYPERTENSION
     Dosage: 40 MG 1 DAYS
     Route: 048
     Dates: start: 20180507, end: 201904
  3. KARDEGIC [Concomitant]
     Active Substance: ASPIRIN DL-LYSINE
     Dosage: 75 MG 1 DAYS
     Route: 048
  4. PLAVIX [Suspect]
     Active Substance: CLOPIDOGREL BISULFATE
     Indication: MYOCARDIAL INFARCTION
     Dosage: 75 MG 1 DAYS
     Route: 048
     Dates: start: 20180421, end: 20181127
  5. NEBILOX 5 MG, COMPRIM? QUADRIS?CABLE [Concomitant]
     Dosage: 5 MG 1 DAYS
     Route: 048

REACTIONS (3)
  - Eosinophilia [Recovered/Resolved]
  - Pruritus [Recovered/Resolved]
  - Rash erythematous [Recovering/Resolving]

NARRATIVE: CASE EVENT DATE: 201810
